FAERS Safety Report 4693207-X (Version None)
Quarter: 2005Q2

REPORT INFORMATION
  Report Type: 
  Country: None (occurrence: None)
  Receive Date: 20050615
  Receipt Date: 20050509
  Transmission Date: 20051028
  Serious: Yes (Death, Hospitalization)
  Sender: FDA-Public Use
  Company Number: 11229

PATIENT
  Age: 77 Year
  Sex: Female

DRUGS (1)
  1. METHOTREXATE [Suspect]
     Dosage: 15 MG WEEKLY, IM
     Route: 030
     Dates: end: 20050401

REACTIONS (5)
  - AGRANULOCYTOSIS [None]
  - EXANTHEM [None]
  - MUCOSAL ULCERATION [None]
  - PANCYTOPENIA [None]
  - PRURITUS GENERALISED [None]
